FAERS Safety Report 15381136 (Version 1)
Quarter: 2018Q3

REPORT INFORMATION
  Report Type: Spontaneous
  Country: US (occurrence: US)
  Receive Date: 20180913
  Receipt Date: 20180913
  Transmission Date: 20181010
  Serious: No
  Sender: FDA-Public Use
  Company Number: US-ASTELLAS-2018US028956

PATIENT
  Sex: Male

DRUGS (1)
  1. XTANDI [Suspect]
     Active Substance: ENZALUTAMIDE
     Indication: PROSTATE CANCER
     Route: 048
     Dates: start: 20180601

REACTIONS (9)
  - Nipple pain [Unknown]
  - Musculoskeletal pain [Unknown]
  - Testicular pain [Unknown]
  - Muscle tightness [Unknown]
  - Pain in extremity [Unknown]
  - Back pain [Recovering/Resolving]
  - Discomfort [Recovering/Resolving]
  - Arthralgia [Unknown]
  - Joint stiffness [Unknown]
